FAERS Safety Report 7669593-5 (Version None)
Quarter: 2011Q3

REPORT INFORMATION
  Report Type: 
  Country: None (occurrence: None)
  Receive Date: 20110808
  Receipt Date: 20110728
  Transmission Date: 20111222
  Serious: Yes (Hospitalization)
  Sender: FDA-Public Use
  Company Number: CA-JNJFOC-20100701839

PATIENT
  Sex: Female
  Weight: 72 kg

DRUGS (9)
  1. IRON SUPPLEMENT [Concomitant]
     Indication: ANAEMIA
     Dates: start: 20110701
  2. REMICADE [Suspect]
     Dosage: INFUSION #18
     Route: 042
     Dates: start: 20100705
  3. REMICADE [Suspect]
     Route: 042
     Dates: start: 20110222
  4. AMOXICILLIN [Suspect]
     Indication: PHARYNGITIS STREPTOCOCCAL
     Dates: start: 20100729, end: 20100804
  5. ATIVAN [Concomitant]
     Indication: ANXIETY
  6. REMICADE [Suspect]
     Indication: CROHN'S DISEASE
     Dosage: 23RD INFUISION
     Route: 042
     Dates: start: 20110728
  7. VENTOLIN HFA [Concomitant]
     Indication: ASTHMA
  8. REMICADE [Suspect]
     Dosage: INFUSION #1-17
     Route: 042
     Dates: start: 20071127
  9. REMICADE [Suspect]
     Route: 042
     Dates: start: 20110512

REACTIONS (8)
  - ASTHMA [None]
  - ANAEMIA [None]
  - URTICARIA [None]
  - THERAPEUTIC PROCEDURE [None]
  - PHARYNGITIS STREPTOCOCCAL [None]
  - JOINT STIFFNESS [None]
  - ARTHRALGIA [None]
  - MATERNAL EXPOSURE DURING PREGNANCY [None]
